FAERS Safety Report 24050721 (Version 1)
Quarter: 2024Q3

REPORT INFORMATION
  Report Type: Spontaneous
  Country: FR (occurrence: FR)
  Receive Date: 20240704
  Receipt Date: 20240704
  Transmission Date: 20241016
  Serious: Yes (Life-Threatening, Hospitalization, Other)
  Sender: CELLTRION
  Company Number: FR-CELLTRION INC.-2024FR015935

PATIENT

DRUGS (2)
  1. RITUXIMAB [Suspect]
     Active Substance: RITUXIMAB
     Indication: B-cell lymphoma
     Dosage: 1 DF
     Dates: start: 202204, end: 20220906
  2. REVLIMID [Suspect]
     Active Substance: LENALIDOMIDE
     Indication: B-cell lymphoma
     Dosage: 1 DF
     Dates: start: 202204, end: 20221012

REACTIONS (2)
  - Diplegia [Not Recovered/Not Resolved]
  - Laryngeal dyspnoea [Not Recovered/Not Resolved]

NARRATIVE: CASE EVENT DATE: 20221022
